FAERS Safety Report 17392287 (Version 1)
Quarter: 2020Q1

REPORT INFORMATION
  Report Type: Report from Study
  Country: US (occurrence: US)
  Receive Date: 20200207
  Receipt Date: 20200207
  Transmission Date: 20200409
  Serious: Yes (Death)
  Sender: FDA-Public Use
  Company Number: US-TAIHO ONCOLOGY  INC-EU-2020-00302

PATIENT
  Age: 53 Year
  Sex: Male

DRUGS (1)
  1. LONSURF [Suspect]
     Active Substance: TIPIRACIL HYDROCHLORIDE\TRIFLURIDINE
     Indication: METASTASIS
     Dosage: CURRENT CYCLE UNKNOWN, TWO 20 MG TABLETS AND ONE 15 MG TABLETS (55 MG TOTAL DOSE)
     Route: 048
     Dates: start: 201912

REACTIONS (1)
  - Death [Fatal]

NARRATIVE: CASE EVENT DATE: 20200111
